FAERS Safety Report 7471067-1 (Version None)
Quarter: 2011Q2

REPORT INFORMATION
  Report Type: 
  Country: None (occurrence: None)
  Receive Date: 20110510
  Receipt Date: 20110427
  Transmission Date: 20111010
  Serious: Yes (Other)
  Sender: FDA-Public Use
  Company Number: CA-JNJFOC-20101207255

PATIENT
  Sex: Female
  Weight: 42.1 kg

DRUGS (36)
  1. ATIVAN [Concomitant]
  2. IMURAN [Concomitant]
  3. FOLIC ACID [Concomitant]
  4. ALENDRONATE SODIUM [Concomitant]
  5. NOVASEN [Concomitant]
  6. FENTANYL [Concomitant]
  7. ONDANSETRON [Concomitant]
  8. LUPRON [Concomitant]
  9. GRAVOL TAB [Concomitant]
  10. HYDROCORTISONE [Concomitant]
     Route: 042
  11. PREDNISONE [Concomitant]
  12. ATIVAN [Concomitant]
  13. MULTI-VITAMINS [Concomitant]
  14. MAXALT [Concomitant]
  15. FERROUS FUMERATE [Concomitant]
  16. TRAMADOL HYDROCHLORIDE/ACETAMINOPHEN [Concomitant]
  17. FLUVOXAMINE [Concomitant]
  18. SEROQUEL [Concomitant]
  19. VENLAFAXINE [Concomitant]
  20. STATEX [Concomitant]
  21. PREMARIN [Concomitant]
  22. STRESS TABS [Concomitant]
  23. REMICADE [Suspect]
     Indication: CROHN'S DISEASE
     Route: 042
  24. ACYCLOVIR [Concomitant]
  25. NEURONTIN [Concomitant]
  26. VITAMIN B-12 [Concomitant]
  27. TRIAVIL [Concomitant]
  28. PANTOLOC [Concomitant]
  29. MAXERAN [Concomitant]
  30. TRAZODONE HCL [Concomitant]
  31. NEXIUM [Concomitant]
  32. DOMPERIDONE [Concomitant]
  33. SEROQUEL [Concomitant]
  34. CALCIUM WITH VITAMIN D [Concomitant]
  35. CHLORAL HYDRATE [Concomitant]
  36. OXYCONTIN [Concomitant]

REACTIONS (4)
  - MUSCULOSKELETAL STIFFNESS [None]
  - PAIN [None]
  - CROHN'S DISEASE [None]
  - ROAD TRAFFIC ACCIDENT [None]
